FAERS Safety Report 11082366 (Version 1)
Quarter: 2015Q2

REPORT INFORMATION
  Report Type: Spontaneous
  Country: US (occurrence: None)
  Receive Date: 20150430
  Receipt Date: 20150430
  Transmission Date: 20150821
  Serious: No
  Sender: FDA-Public Use
  Company Number: None

PATIENT
  Sex: Female

DRUGS (7)
  1. HYDROCODONE/APAP [Concomitant]
     Active Substance: ACETAMINOPHEN\HYDROCODONE
  2. VITAMIN D [Concomitant]
     Active Substance: CHOLECALCIFEROL
  3. ENBREL [Suspect]
     Active Substance: ETANERCEPT
     Indication: AUTOIMMUNE DISORDER
     Dosage: SQ
     Dates: start: 20150407
  4. FISH OIL [Concomitant]
     Active Substance: FISH OIL
  5. METHOTREXATE [Concomitant]
     Active Substance: METHOTREXATE
  6. ADVIL [Concomitant]
     Active Substance: IBUPROFEN
  7. FOLIC ACID. [Concomitant]
     Active Substance: FOLIC ACID

REACTIONS (2)
  - Condition aggravated [None]
  - Injection site reaction [None]
